FAERS Safety Report 11168132 (Version 2)
Quarter: 2015Q2

REPORT INFORMATION
  Report Type: Spontaneous
  Country: US (occurrence: US)
  Receive Date: 20150605
  Receipt Date: 20150608
  Transmission Date: 20150821
  Serious: No
  Sender: FDA-Public Use
  Company Number: US-PFIZER INC-2015185623

PATIENT
  Age: 68 Year
  Sex: Male
  Weight: 82 kg

DRUGS (3)
  1. VIAGRA [Suspect]
     Active Substance: SILDENAFIL CITRATE
     Indication: CARDIOVASCULAR INSUFFICIENCY
     Dosage: 25 MG, DAILY (1/4 OF A 100MG TABLET) BY MOUTH DAILY)
     Route: 048
     Dates: start: 20150520, end: 20150525
  2. QVAR [Concomitant]
     Active Substance: BECLOMETHASONE DIPROPIONATE
     Indication: ASTHMA
     Dosage: 1 UNK, 2X/DAY (1 PUFF TWICE A DAY)
  3. SINGULAIR [Concomitant]
     Active Substance: MONTELUKAST SODIUM
     Indication: ASTHMA
     Dosage: 10 MG, UNK
     Route: 048

REACTIONS (4)
  - Headache [Recovered/Resolved]
  - Flushing [Recovered/Resolved]
  - Sinus headache [Recovered/Resolved]
  - Product use issue [Recovered/Resolved]

NARRATIVE: CASE EVENT DATE: 201505
